FAERS Safety Report 4526153-2 (Version None)
Quarter: 2004Q4

REPORT INFORMATION
  Report Type: 
  Country: None (occurrence: None)
  Receive Date: 20041126
  Receipt Date: 20041022
  Transmission Date: 20050328
  Serious: No
  Sender: FDA-Public Use
  Company Number: SU-2004-002793

PATIENT
  Age: 65 Year
  Sex: Female

DRUGS (5)
  1. BENICAR [Suspect]
     Indication: HYPERTENSION
     Dosage: 10 MG QD PO
     Route: 048
     Dates: start: 20041002, end: 20041001
  2. BENICAR [Suspect]
     Indication: HYPERTENSION
     Dosage: 6.67 MG QD PO
     Route: 048
     Dates: start: 20041001
  3. ATENOLOL [Concomitant]
  4. CHLORTHALIDONE [Concomitant]
  5. LIPITOR [Concomitant]

REACTIONS (4)
  - BLEPHAROSPASM [None]
  - HANGOVER [None]
  - HYPOTENSION [None]
  - HYPOTRICHOSIS [None]
